FAERS Safety Report 5013796-5 (Version None)
Quarter: 2006Q2

REPORT INFORMATION
  Report Type: 
  Country: None (occurrence: None)
  Receive Date: 20060525
  Receipt Date: 20060520
  Transmission Date: 20061013
  Serious: Yes (Other)
  Sender: FDA-Public Use
  Company Number: 222515

PATIENT
  Age: 53 Year
  Sex: Male

DRUGS (6)
  1. AVASTIN [Suspect]
     Indication: COLON CANCER
  2. FLUOROURACIL [Concomitant]
  3. LEUCOVORIN CALCIUM [Concomitant]
  4. OXALIPLATIN (OXALIPLATIN) [Concomitant]
  5. METOPROLOL TARTRATE [Concomitant]
  6. IRBESARTAN [Concomitant]

REACTIONS (5)
  - EPISTAXIS [None]
  - ERYTHEMA [None]
  - MUCOSAL DRYNESS [None]
  - NASAL SEPTUM PERFORATION [None]
  - SCAB [None]
